FAERS Safety Report 7591695-2 (Version None)
Quarter: 2011Q3

REPORT INFORMATION
  Report Type: 
  Country: None (occurrence: None)
  Receive Date: 20110706
  Receipt Date: 20110616
  Transmission Date: 20111222
  Serious: Yes (Hospitalization)
  Sender: FDA-Public Use
  Company Number: US-BAYER-2010-002076

PATIENT
  Age: 38 Year
  Sex: Female
  Weight: 63.492 kg

DRUGS (5)
  1. FAMVIR [Concomitant]
     Indication: HERPES SIMPLEX
  2. PERCOCET [Concomitant]
  3. YAZ [Suspect]
     Indication: CONTRACEPTION
     Dosage: UNK
     Route: 048
     Dates: start: 20070901, end: 20091201
  4. VALTREX [Concomitant]
     Indication: HERPES SIMPLEX
  5. YAZ [Suspect]
     Indication: PREMENSTRUAL SYNDROME

REACTIONS (4)
  - CHOLECYSTITIS CHRONIC [None]
  - PANCREATITIS [None]
  - GALLBLADDER DISORDER [None]
  - CHOLELITHIASIS [None]
